FAERS Safety Report 8053292-4 (Version None)
Quarter: 2012Q1

REPORT INFORMATION
  Report Type: 
  Country: None (occurrence: None)
  Receive Date: 20120118
  Receipt Date: 20120111
  Transmission Date: 20120608
  Serious: Yes (Death, Other)
  Sender: FDA-Public Use
  Company Number: JP-ROCHE-1030060

PATIENT
  Age: 29 Year
  Sex: Female

DRUGS (5)
  1. MYCOPHENOLATE MOFETIL (CELLCEPT) [Suspect]
     Route: 048
  2. MYCOPHENOLATE MOFETIL (CELLCEPT) [Suspect]
     Indication: PROPHYLAXIS AGAINST GRAFT VERSUS HOST DISEASE
     Dosage: DOSAGE IS UNCERTAIN.
     Route: 048
  3. IMMUNE GLOBULIN (HUMAN) [Suspect]
     Indication: PROPHYLAXIS AGAINST GRAFT VERSUS HOST DISEASE
     Dosage: 1MG/KG/DAY
     Route: 041
  4. TACROLIMUS [Concomitant]
     Indication: PROPHYLAXIS AGAINST GRAFT VERSUS HOST DISEASE
     Dosage: DOSAGE IS UNCERTAIN.
     Route: 048
  5. METHYLPREDNISOLONE [Suspect]
     Indication: PROPHYLAXIS AGAINST GRAFT VERSUS HOST DISEASE
     Dosage: 1MG/KG/DAY-5MG/DAY
     Route: 048

REACTIONS (2)
  - INTERSTITIAL LUNG DISEASE [None]
  - POST TRANSPLANT LYMPHOPROLIFERATIVE DISORDER [None]
